FAERS Safety Report 14987396 (Version 1)
Quarter: 2018Q2

REPORT INFORMATION
  Report Type: Report from Study
  Country: ES (occurrence: ES)
  Receive Date: 20180608
  Receipt Date: 20180608
  Transmission Date: 20180711
  Serious: Yes (Hospitalization, Other)
  Sender: FDA-Public Use
  Company Number: ES-TEVA-2018-ES-902113

PATIENT
  Age: 85 Year
  Sex: Female

DRUGS (5)
  1. QUETIAPINA 25 [Interacting]
     Active Substance: QUETIAPINE
     Dosage: 25 MILLIGRAM DAILY;
     Route: 048
     Dates: start: 20150828
  2. SINEMET PLUS 25 MG/100 MG COMPRIMIDOS , 100 COMPRIMIDOS [Interacting]
     Active Substance: CARBIDOPA\LEVODOPA
     Dosage: 1-1/2-1, 25 MG / 100 MG TABLETS, 100 TABLETS
     Route: 048
     Dates: start: 20150828
  3. SERTRALINA (2537A) [Suspect]
     Active Substance: SERTRALINE HYDROCHLORIDE
     Dosage: 50 MILLIGRAM DAILY;
     Route: 048
     Dates: start: 20150828, end: 20170617
  4. PREDNISONA 5 [Concomitant]
     Dosage: 1 CAPSULE ALTERNATE DAYS WITH 1/2 CAPSULE
     Route: 048
     Dates: start: 20140101
  5. BONVIVA [Concomitant]
     Active Substance: IBANDRONATE SODIUM
     Dates: start: 20140101

REACTIONS (3)
  - Dehydration [Recovered/Resolved]
  - Acute kidney injury [Recovered/Resolved]
  - Drug interaction [Unknown]

NARRATIVE: CASE EVENT DATE: 20170617
